FAERS Safety Report 10067168 (Version 1)
Quarter: 2014Q2

REPORT INFORMATION
  Report Type: Spontaneous
  Country: JP (occurrence: None)
  Receive Date: 20140407
  Receipt Date: 20140407
  Transmission Date: 20141212
  Serious: Yes (Death)
  Sender: FDA-Public Use
  Company Number: AE-SPE-2014-008

PATIENT
  Age: 1 Year
  Sex: 0

DRUGS (3)
  1. MEIACT MS [Suspect]
     Indication: GASTROENTERITIS
     Route: 048
  2. MEIACT MS [Suspect]
     Indication: PYREXIA
     Route: 048
  3. DIAZEPAM (UNK) [Concomitant]

REACTIONS (5)
  - Convulsion [None]
  - Respiratory arrest [None]
  - Hepatic steatosis [None]
  - Carnitine palmitoyltransferase deficiency [None]
  - Condition aggravated [None]
